FAERS Safety Report 13080842 (Version 1)
Quarter: 2017Q1

REPORT INFORMATION
  Report Type: Report from Study
  Country: BR (occurrence: BR)
  Receive Date: 20170103
  Receipt Date: 20170103
  Transmission Date: 20170428
  Serious: Yes (Hospitalization)
  Sender: FDA-Public Use
  Company Number: PHHY2016BR180041

PATIENT
  Sex: Male

DRUGS (1)
  1. EXJADE [Suspect]
     Active Substance: DEFERASIROX
     Indication: SICKLE CELL ANAEMIA
     Dosage: 1000 MG, QD (IN THE MORNING)
     Route: 048

REACTIONS (4)
  - Haematocrit decreased [Unknown]
  - Back pain [Unknown]
  - Haematocrit increased [Unknown]
  - Blood iron increased [Unknown]
